FAERS Safety Report 11118648 (Version 2)
Quarter: 2019Q2

REPORT INFORMATION
  Report Type: Spontaneous
  Country: US (occurrence: US)
  Receive Date: 20150518
  Receipt Date: 20190614
  Transmission Date: 20190711
  Serious: No
  Sender: FDA-Public Use
  Company Number: US-JNJFOC-20150505856

PATIENT
  Sex: Male

DRUGS (8)
  1. RISPERDAL [Suspect]
     Active Substance: RISPERIDONE
     Indication: COGNITIVE DISORDER
     Dosage: IN VARYING DOSES OF 1 MG AND 2 MG.ONE-HALF TABLET BY MOUTH EVERY MORNING AND ONE TABLET AT BEDTIME
     Route: 048
     Dates: start: 20131206, end: 20140107
  2. RISPERDAL [Suspect]
     Active Substance: RISPERIDONE
     Indication: COGNITIVE DISORDER
     Route: 048
     Dates: start: 20130427, end: 20140911
  3. RISPERDAL [Suspect]
     Active Substance: RISPERIDONE
     Indication: SCHIZOAFFECTIVE DISORDER
     Route: 048
     Dates: start: 20130427, end: 20140911
  4. RISPERDAL [Suspect]
     Active Substance: RISPERIDONE
     Indication: PSYCHOTIC DISORDER
     Dosage: IN VARYING DOSES OF 1 MG AND 2 MG.ONE-HALF TABLET BY MOUTH EVERY MORNING AND ONE TABLET AT BEDTIME
     Route: 048
     Dates: start: 20131206, end: 20140107
  5. RISPERDAL [Suspect]
     Active Substance: RISPERIDONE
     Indication: PSYCHOTIC DISORDER
     Route: 048
     Dates: start: 20130427, end: 20140911
  6. RISPERDAL [Suspect]
     Active Substance: RISPERIDONE
     Indication: DEPRESSION
     Route: 048
     Dates: start: 20130427, end: 20140911
  7. RISPERDAL [Suspect]
     Active Substance: RISPERIDONE
     Indication: SCHIZOAFFECTIVE DISORDER
     Dosage: IN VARYING DOSES OF 1 MG AND 2 MG.ONE-HALF TABLET BY MOUTH EVERY MORNING AND ONE TABLET AT BEDTIME
     Route: 048
     Dates: start: 20131206, end: 20140107
  8. RISPERDAL [Suspect]
     Active Substance: RISPERIDONE
     Indication: DEPRESSION
     Dosage: IN VARYING DOSES OF 1 MG AND 2 MG.ONE-HALF TABLET BY MOUTH EVERY MORNING AND ONE TABLET AT BEDTIME
     Route: 048
     Dates: start: 20131206, end: 20140107

REACTIONS (4)
  - Treatment noncompliance [Unknown]
  - Galactorrhoea [Unknown]
  - Hyperprolactinaemia [Unknown]
  - Gynaecomastia [Unknown]

NARRATIVE: CASE EVENT DATE: 2012
